FAERS Safety Report 15274522 (Version 2)
Quarter: 2018Q3

REPORT INFORMATION
  Report Type: Spontaneous
  Country: GB (occurrence: GB)
  Receive Date: 20180814
  Receipt Date: 20180817
  Transmission Date: 20181010
  Serious: Yes (Death, Hospitalization, Other)
  Sender: FDA-Public Use
  Company Number: GB-UCBSA-2018034444

PATIENT
  Age: 92 Year
  Sex: Male

DRUGS (6)
  1. MORPHINE SULPHATE [Concomitant]
     Active Substance: MORPHINE SULFATE
     Indication: PRODUCT USED FOR UNKNOWN INDICATION
     Dosage: 2.5 MG, UNK
     Route: 042
     Dates: start: 20180319
  2. CEFTAZIDIME. [Concomitant]
     Active Substance: CEFTAZIDIME
     Indication: PRODUCT USED FOR UNKNOWN INDICATION
  3. KEPPRA [Suspect]
     Active Substance: LEVETIRACETAM
     Indication: EPILEPSY
     Dosage: 250MG TABLET IN THE MORNING AND A 500MG TABLET IN THE EVENING (2 TIMES DAILY)
     Route: 048
     Dates: end: 201803
  4. MORPHINE SULPHATE [Concomitant]
     Active Substance: MORPHINE SULFATE
     Indication: PRODUCT USED FOR UNKNOWN INDICATION
     Dosage: UNK
     Dates: start: 20180316
  5. DALTEPARIN [Concomitant]
     Active Substance: DALTEPARIN
     Indication: PRODUCT USED FOR UNKNOWN INDICATION
  6. KEPPRA [Suspect]
     Active Substance: LEVETIRACETAM
     Indication: EPILEPSY
     Dosage: 250MG IN THE MORNING AND A 500MG IN THE EVENING (2 TIMES DAILY)
     Route: 042
     Dates: start: 20180315, end: 20180321

REACTIONS (8)
  - Somnolence [Unknown]
  - Intentional product misuse [Unknown]
  - Pulmonary oedema [Unknown]
  - Dysphagia [Unknown]
  - Oedema peripheral [Unknown]
  - Loss of consciousness [Fatal]
  - Dementia [Unknown]
  - Cardiac disorder [Unknown]
